FAERS Safety Report 23189771 (Version 2)
Quarter: 2024Q3

REPORT INFORMATION
  Report Type: Report from Study
  Country: US (occurrence: US)
  Receive Date: 20231116
  Receipt Date: 20240930
  Transmission Date: 20241017
  Serious: Yes (Hospitalization, Disabling)
  Sender: EMD SERONO INC
  Company Number: US-Merck Healthcare KGaA-2023487434

PATIENT
  Age: 59 Year
  Sex: Male

DRUGS (1)
  1. REBIF [Suspect]
     Active Substance: INTERFERON BETA-1A
     Indication: Multiple sclerosis
     Dosage: STRENGTH: 44 MCG/0.5 ML
     Route: 058
     Dates: start: 202202

REACTIONS (2)
  - Mental disorder [Unknown]
  - Disability [Unknown]
